FAERS Safety Report 14149945 (Version 2)
Quarter: 2017Q4

REPORT INFORMATION
  Report Type: Spontaneous
  Country: US (occurrence: US)
  Receive Date: 20171101
  Receipt Date: 20171205
  Transmission Date: 20180321
  Serious: No
  Sender: FDA-Public Use
  Company Number: US-ASTRAZENECA-2017SF10348

PATIENT
  Age: 874 Month
  Sex: Female
  Weight: 73.9 kg

DRUGS (4)
  1. MORPHINE [Concomitant]
     Active Substance: MORPHINE
  2. BAYER LOW DOSE [Concomitant]
     Active Substance: ASPIRIN
     Indication: ILL-DEFINED DISORDER
     Route: 048
     Dates: start: 201702
  3. LOSARTAN. [Concomitant]
     Active Substance: LOSARTAN
     Indication: BLOOD PRESSURE ABNORMAL
     Dosage: UNKNOWN
     Route: 065
  4. BRILINTA [Suspect]
     Active Substance: TICAGRELOR
     Indication: STENT PLACEMENT
     Route: 048
     Dates: start: 201702, end: 20171027

REACTIONS (12)
  - Pain [Recovered/Resolved]
  - Myelopathy [Not Recovered/Not Resolved]
  - Back pain [Not Recovered/Not Resolved]
  - Nervousness [Not Recovered/Not Resolved]
  - Blood urine present [Recovered/Resolved]
  - Arthropathy [Not Recovered/Not Resolved]
  - Drug dose omission [Not Recovered/Not Resolved]
  - Vaginal haemorrhage [Recovered/Resolved]
  - Nephrolithiasis [Recovered/Resolved]
  - Cervical polyp [Unknown]
  - Fear [Not Recovered/Not Resolved]
  - Contusion [Unknown]

NARRATIVE: CASE EVENT DATE: 201707
